FAERS Safety Report 8718102 (Version 2)
Quarter: 2012Q4

REPORT INFORMATION
  Report Type: 
  Country: CH (occurrence: CH)
  Receive Date: 20120810
  Receipt Date: 20120924
  Transmission Date: 20130627
  Serious: Yes (Death, Other)
  Sender: FDA-Public Use
  Company Number: PHHY2012CH068630

PATIENT
  Age: 71 Year
  Sex: Female

DRUGS (5)
  1. METHOTREXATE [Suspect]
     Indication: RHEUMATOID ARTHRITIS
     Dosage: 20 mg, UNK
     Route: 030
     Dates: start: 200903
  2. FOLIC ACID [Concomitant]
     Dosage: 1 mg, QD
  3. HEXETIDINE [Concomitant]
     Indication: APHTHOUS STOMATITIS
     Dates: start: 200904
  4. PREDNISOLONE [Concomitant]
     Dosage: 20 mg, QD
     Route: 048
  5. PREDNISOLONE [Concomitant]
     Dosage: 10 mg, QD
     Dates: start: 200904

REACTIONS (14)
  - Right ventricular failure [Fatal]
  - Loss of consciousness [Fatal]
  - Myocardial fibrosis [Fatal]
  - Arteriosclerosis coronary artery [Unknown]
  - Cardiac hypertrophy [Unknown]
  - Pneumonitis [Unknown]
  - Cough [Unknown]
  - Acute pulmonary oedema [Unknown]
  - Pulmonary fibrosis [Unknown]
  - Vasculitis [Unknown]
  - Bronchitis chronic [Unknown]
  - Rales [Unknown]
  - Chills [Unknown]
  - Productive cough [Unknown]
